FAERS Safety Report 25047443 (Version 1)
Quarter: 2025Q1

REPORT INFORMATION
  Report Type: Spontaneous
  Country: PK (occurrence: PK)
  Receive Date: 20250306
  Receipt Date: 20250306
  Transmission Date: 20250408
  Serious: Yes (Other)
  Sender: PFIZER
  Company Number: PK-PFIZER INC-PV202400112050

PATIENT
  Age: 26 Year
  Sex: Male

DRUGS (11)
  1. RUXIENCE [Suspect]
     Active Substance: RITUXIMAB-PVVR
     Indication: Rheumatoid arthritis
     Route: 042
     Dates: start: 202408
  2. SEPTRAN DS [Concomitant]
  3. FAMOPSIN [Concomitant]
     Dosage: 40 MG, 1X/DAY
  4. SODIUM PICOSULFATE [Concomitant]
     Active Substance: SODIUM PICOSULFATE
  5. PEXOT CR [Concomitant]
     Dosage: 25 MG, 1X/DAY
  6. SOLIF [Concomitant]
     Dosage: 5 MG, 1X/DAY
  7. MIRABET [Concomitant]
     Dosage: MORNING
  8. OMEGA-3 FATTY ACIDS [Concomitant]
     Active Substance: OMEGA-3 FATTY ACIDS
  9. BACLIN [BACLOFEN] [Concomitant]
  10. AZM [Concomitant]
  11. AMANTADINE SULFATE [Concomitant]
     Active Substance: AMANTADINE SULFATE

REACTIONS (4)
  - Erectile dysfunction [Unknown]
  - Relapsing-remitting multiple sclerosis [Unknown]
  - Hypertension [Unknown]
  - Off label use [Unknown]

NARRATIVE: CASE EVENT DATE: 20240801
